FAERS Safety Report 12342756 (Version 1)
Quarter: 2016Q2

REPORT INFORMATION
  Report Type: Spontaneous
  Country: DK (occurrence: DK)
  Receive Date: 20160506
  Receipt Date: 20160506
  Transmission Date: 20160815
  Serious: Yes (Life-Threatening, Hospitalization)
  Sender: FDA-Public Use
  Company Number: DK-JNJFOC-20160501921

PATIENT
  Age: 28 Year
  Sex: Male
  Weight: 105 kg

DRUGS (14)
  1. METHADONE [Concomitant]
     Active Substance: METHADONE HYDROCHLORIDE
     Indication: PAIN
     Route: 065
     Dates: start: 20151201
  2. PARACETAMOL [Concomitant]
     Active Substance: ACETAMINOPHEN
     Indication: PAIN
     Route: 065
     Dates: start: 20151111
  3. RISPERIDON [Concomitant]
     Active Substance: RISPERIDONE
     Indication: ANXIETY
     Route: 065
     Dates: start: 20151224
  4. LEVETIRACETAM. [Concomitant]
     Active Substance: LEVETIRACETAM
     Indication: MUSCLE SPASMS
     Route: 065
     Dates: start: 20151203
  5. REVLIMID [Interacting]
     Active Substance: LENALIDOMIDE
     Indication: NON-HODGKIN^S LYMPHOMA
     Route: 065
     Dates: start: 20160205, end: 20160311
  6. INSULIN HUMAN INJECTION, ISOPHANE [Concomitant]
     Active Substance: INSULIN HUMAN
     Indication: DIABETES MELLITUS
     Route: 065
     Dates: start: 20151112
  7. SULFAMETHOXAZOLE AND TRIMETHOPRIM [Concomitant]
     Active Substance: SULFAMETHOXAZOLE\TRIMETHOPRIM
     Indication: INFECTION PROPHYLAXIS
     Route: 065
     Dates: start: 20151231
  8. OXAPAX [Concomitant]
     Active Substance: OXAZEPAM
     Indication: ANXIETY
     Route: 065
     Dates: start: 20151204
  9. PANTOPRAZOLE SODIUM. [Concomitant]
     Active Substance: PANTOPRAZOLE SODIUM
     Indication: PROPHYLAXIS AGAINST GASTROINTESTINAL ULCER
     Route: 065
     Dates: start: 20151026
  10. MORPHINE [Concomitant]
     Active Substance: MORPHINE
     Indication: PAIN
     Route: 065
     Dates: start: 20151130
  11. LYRICA [Concomitant]
     Active Substance: PREGABALIN
     Indication: PAIN
     Route: 065
     Dates: start: 20151201
  12. IMBRUVICA [Suspect]
     Active Substance: IBRUTINIB
     Indication: NON-HODGKIN^S LYMPHOMA
     Dosage: 560.0,????140 MG
     Route: 048
     Dates: start: 20160205
  13. DEXAMETHASONE. [Interacting]
     Active Substance: DEXAMETHASONE
     Indication: NON-HODGKIN^S LYMPHOMA
     Dosage: 245
     Route: 048
     Dates: start: 20151028
  14. INSUMAN RAPID [Concomitant]
     Active Substance: INSULIN HUMAN
     Indication: DIABETES MELLITUS
     Route: 065
     Dates: start: 20151111

REACTIONS (2)
  - Drug interaction [Not Recovered/Not Resolved]
  - Cerebral fungal infection [Not Recovered/Not Resolved]

NARRATIVE: CASE EVENT DATE: 20160311
